FAERS Safety Report 6114418-2 (Version None)
Quarter: 2009Q1

REPORT INFORMATION
  Report Type: 
  Country: None (occurrence: None)
  Receive Date: 20090313
  Receipt Date: 20090305
  Transmission Date: 20090719
  Serious: Yes (Other)
  Sender: FDA-Public Use
  Company Number: US-CELGENEUS-163-21880-09030783

PATIENT
  Sex: Female

DRUGS (3)
  1. REVLIMID [Suspect]
     Indication: MULTIPLE MYELOMA
     Route: 048
     Dates: start: 20080801, end: 20081001
  2. REVLIMID [Suspect]
     Dosage: 25MG - 15MG
     Route: 048
     Dates: start: 20080108, end: 20080701
  3. REVLIMID [Suspect]
     Route: 048
     Dates: start: 20071207

REACTIONS (1)
  - LIVER TRANSPLANT [None]
